FAERS Safety Report 17057428 (Version 2)
Quarter: 2019Q4

REPORT INFORMATION
  Report Type: Spontaneous
  Country: US (occurrence: US)
  Receive Date: 20191121
  Receipt Date: 20191203
  Transmission Date: 20200122
  Serious: No
  Sender: FDA-Public Use
  Company Number: US-CELGENEUS-USA-20191105557

PATIENT
  Sex: Male

DRUGS (2)
  1. THALOMID [Suspect]
     Active Substance: THALIDOMIDE
     Indication: ECZEMA
     Dosage: 100 MILLIGRAM
     Route: 048
     Dates: start: 201909
  2. THALOMID [Suspect]
     Active Substance: THALIDOMIDE
     Indication: OFF LABEL USE

REACTIONS (4)
  - Fatigue [Unknown]
  - Therapeutic product effect incomplete [Unknown]
  - Feeling abnormal [Unknown]
  - Somnolence [Unknown]

NARRATIVE: CASE EVENT DATE: 2019
